FAERS Safety Report 25567249 (Version 3)
Quarter: 2025Q3

REPORT INFORMATION
  Report Type: Spontaneous
  Country: CL (occurrence: CL)
  Receive Date: 20250716
  Receipt Date: 20250805
  Transmission Date: 20251020
  Serious: Yes (Other)
  Sender: SANDOZ
  Company Number: CL-002147023-NVSC2025CL111854

PATIENT
  Age: 55 Year
  Sex: Female

DRUGS (3)
  1. FULVESTRANT [Suspect]
     Active Substance: FULVESTRANT
     Indication: Product used for unknown indication
     Route: 065
  2. KISQALI [Suspect]
     Active Substance: RIBOCICLIB SUCCINATE
     Indication: Breast cancer
     Dosage: 3 DF, QD (3 DOSAGE FORM (OF 200 MG (600 MG)), QD)
     Route: 048
     Dates: start: 20250505
  3. KISQALI [Suspect]
     Active Substance: RIBOCICLIB SUCCINATE
     Route: 065
     Dates: start: 20250629

REACTIONS (9)
  - Spinal cord injury lumbar [Unknown]
  - Spinal cord injury thoracic [Unknown]
  - Metastasis [Unknown]
  - Liver injury [Recovering/Resolving]
  - Pelvic bone injury [Unknown]
  - Liver disorder [Unknown]
  - Skeletal injury [Unknown]
  - Breast complication associated with device [Unknown]
  - Positron emission tomogram abnormal [Unknown]

NARRATIVE: CASE EVENT DATE: 20250627
